FAERS Safety Report 20770543 (Version 1)
Quarter: 2022Q2

REPORT INFORMATION
  Report Type: Report from Study
  Country: BR (occurrence: BR)
  Receive Date: 20220429
  Receipt Date: 20220429
  Transmission Date: 20220720
  Serious: Yes (Disabling)
  Sender: FDA-Public Use
  Company Number: BR-ABBVIE-22K-020-4374504-00

PATIENT
  Sex: Female

DRUGS (1)
  1. RINVOQ [Suspect]
     Active Substance: UPADACITINIB
     Indication: Rheumatoid arthritis
     Route: 048

REACTIONS (6)
  - Rheumatic disorder [Unknown]
  - Peripheral swelling [Unknown]
  - Depressed mood [Unknown]
  - Gait inability [Unknown]
  - Dysstasia [Unknown]
  - Grip strength decreased [Unknown]
